FAERS Safety Report 9748239 (Version 1)
Quarter: 2013Q4

REPORT INFORMATION
  Report Type: Spontaneous
  Country: FR (occurrence: None)
  Receive Date: 20131209
  Receipt Date: 20131209
  Transmission Date: 20140711
  Serious: Yes (Hospitalization)
  Sender: FDA-Public Use
  Company Number: 2051386

PATIENT
  Age: 50 Year
  Sex: Female

DRUGS (6)
  1. IRINOTECAN HYDROCHLORIDE [Suspect]
     Indication: PRODUCT USED FOR UNKNOWN INDICATION
     Route: 041
     Dates: start: 20130926, end: 20130926
  2. OXALIPLATIN [Suspect]
     Indication: PRODUCT USED FOR UNKNOWN INDICATION
     Route: 041
     Dates: start: 20130926
  3. CALCIIUM LEVOFOLINATE [Suspect]
     Indication: PREMEDICATION
     Route: 041
     Dates: start: 20130926
  4. METHYLPREDNISOLONE [Concomitant]
  5. ATROPINE [Concomitant]
  6. ZOPHREN [Concomitant]

REACTIONS (6)
  - Dysphonia [None]
  - Dysphonia [None]
  - Muscle contractions involuntary [None]
  - Hypertension [None]
  - Diarrhoea [None]
  - Somnolence [None]
